FAERS Safety Report 6260117-6 (Version None)
Quarter: 2009Q3

REPORT INFORMATION
  Report Type: 
  Country: None (occurrence: None)
  Receive Date: 20090708
  Receipt Date: 20090626
  Transmission Date: 20100115
  Serious: Yes (Hospitalization)
  Sender: FDA-Public Use
  Company Number: JP-ELI_LILLY_AND_COMPANY-JP200907000599

PATIENT
  Sex: Male

DRUGS (2)
  1. HUMALOG MIX 50/50 [Suspect]
     Dosage: 26 IU, DAILY (1/D)
     Route: 058
  2. HUMALOG MIX 50/50 [Suspect]
     Dosage: 18 IU, DAILY (1/D)
     Route: 058

REACTIONS (1)
  - BLOOD GLUCOSE INCREASED [None]
